FAERS Safety Report 5392125-1 (Version None)
Quarter: 2007Q3

REPORT INFORMATION
  Report Type: 
  Country: None (occurrence: None)
  Receive Date: 20070718
  Receipt Date: 20070718
  Transmission Date: 20080115
  Serious: Yes (Death, Hospitalization)
  Sender: FDA-Public Use
  Company Number: None

PATIENT
  Age: 51 Year
  Sex: Male

DRUGS (13)
  1. REVLIMID [Suspect]
     Indication: MULTIPLE MYELOMA
     Dosage: 5 MG EVERY OTHER DAY PO
     Route: 048
  2. LORAZEPAM [Concomitant]
  3. VICODIN [Concomitant]
  4. CEPHALEXIN [Concomitant]
  5. ONDANSETRON [Concomitant]
  6. PROMETHAZINE [Concomitant]
  7. OMEPRAZOLE [Concomitant]
  8. METOCLOPRAMIDE [Concomitant]
  9. PROCRIT [Concomitant]
  10. ATENOLOL [Concomitant]
  11. FELODIPINE [Concomitant]
  12. FOLIC ACID [Concomitant]
  13. ALBUTEROL [Concomitant]

REACTIONS (6)
  - ANAEMIA [None]
  - MALIGNANT NEOPLASM PROGRESSION [None]
  - MULTIPLE MYELOMA [None]
  - PNEUMONIA [None]
  - SEPSIS [None]
  - THROMBOCYTOPENIA [None]
